FAERS Safety Report 7487004-X (Version None)
Quarter: 2011Q2

REPORT INFORMATION
  Report Type: 
  Country: None (occurrence: None)
  Receive Date: 20110518
  Receipt Date: 20110504
  Transmission Date: 20111010
  Serious: Yes (Hospitalization)
  Sender: FDA-Public Use
  Company Number: GB-MYLANLABS-2011S1009496

PATIENT
  Sex: Female

DRUGS (4)
  1. METHOTREXATE [Suspect]
     Indication: BREAST CANCER
     Dosage: RECEIVED 4 CYCLES OF CMF AFTER EPIRUBICIN ON DAY 1 AND 8 EVERY 4 WEEKS
     Route: 042
  2. EPIRUBICIN [Suspect]
     Indication: BREAST CANCER
     Dosage: EVERY 3 WEEKS FOR 4 CYCLES PRIOR TO CMF
  3. FLUOROURACIL [Suspect]
     Indication: BREAST CANCER
     Dosage: RECEIVED 4 CYCLES OF CMF AFTER EPIRUBICIN ON DAY 1 AND 8 EVERY 4 WEEKS
     Route: 042
  4. CYCLOPHOSPHAMIDE [Suspect]
     Indication: BREAST CANCER
     Dosage: RECEIVED 4 CYCLES OF CMF AFTER EPIRUBICIN ON DAY 1 AND 8 EVERY 4 WEEKS
     Route: 042

REACTIONS (1)
  - ISCHAEMIC STROKE [None]
